FAERS Safety Report 4835075-9 (Version None)
Quarter: 2005Q4

REPORT INFORMATION
  Report Type: 
  Country: None (occurrence: None)
  Receive Date: 20051114
  Receipt Date: 20051101
  Transmission Date: 20060501
  Serious: Yes (Hospitalization)
  Sender: FDA-Public Use
  Company Number: 2005BI014863

PATIENT
  Age: 58 Year
  Sex: Female

DRUGS (1)
  1. AVONEX [Suspect]
     Indication: MULTIPLE SCLEROSIS
     Dosage: 30 UG;QW;IM
     Route: 030
     Dates: start: 20011101

REACTIONS (4)
  - ANKLE FRACTURE [None]
  - DEEP VEIN THROMBOSIS [None]
  - FALL [None]
  - PULMONARY EMBOLISM [None]
